FAERS Safety Report 21386695 (Version 4)
Quarter: 2022Q4

REPORT INFORMATION
  Report Type: Spontaneous
  Country: PL (occurrence: PL)
  Receive Date: 20220928
  Receipt Date: 20221110
  Transmission Date: 20230113
  Serious: Yes (Other)
  Sender: FDA-Public Use
  Company Number: PL-NOVARTISPH-NVSC2022PL218206

PATIENT
  Age: 69 Year
  Sex: Male

DRUGS (4)
  1. PEMETREXED [Suspect]
     Active Substance: PEMETREXED
     Indication: Lung adenocarcinoma
     Dosage: 500 MG/M2, CYCLIC (21-DAYS CYCLES)
     Route: 042
     Dates: start: 20210325
  2. CISPLATIN [Suspect]
     Active Substance: CISPLATIN
     Indication: Lung adenocarcinoma
     Dosage: 75 MG/M2, IN 21-DAY CYCLES
     Route: 042
     Dates: start: 20210325
  3. PEMBROLIZUMAB [Suspect]
     Active Substance: PEMBROLIZUMAB
     Indication: Lung adenocarcinoma
     Dosage: 200 MG (FIXED DOSE)
     Route: 042
     Dates: start: 20210325
  4. ZOLEDRONIC ACID [Concomitant]
     Active Substance: ZOLEDRONIC ACID
     Indication: Lung adenocarcinoma
     Dosage: 4 MG, UNKNOWN
     Route: 042

REACTIONS (3)
  - Neutropenia [Unknown]
  - Atrial fibrillation [Unknown]
  - Anaemia [Unknown]
